FAERS Safety Report 10530163 (Version 1)
Quarter: 2014Q4

REPORT INFORMATION
  Report Type: Spontaneous
  Country: US (occurrence: US)
  Receive Date: 20141021
  Receipt Date: 20141021
  Transmission Date: 20150528
  Serious: No
  Sender: FDA-Public Use
  Company Number: US-PFIZER INC-2014285214

PATIENT
  Age: 57 Year
  Sex: Male
  Weight: 145 kg

DRUGS (1)
  1. GABAPENTIN. [Suspect]
     Active Substance: GABAPENTIN
     Dosage: ONE OR TWO 300 MG CAPSULES, DAILY AS NEEDED
     Route: 048
     Dates: end: 2014

REACTIONS (1)
  - Drug ineffective [Unknown]
